FAERS Safety Report 11229680 (Version 1)
Quarter: 2015Q2

REPORT INFORMATION
  Report Type: Spontaneous
  Country: JP (occurrence: JP)
  Receive Date: 20150630
  Receipt Date: 20150630
  Transmission Date: 20150821
  Serious: Yes (Other)
  Sender: FDA-Public Use
  Company Number: JP-B.I. PHARMACEUTICALS,INC./RIDGEFIELD-2015-BI-34275GD

PATIENT
  Age: 78 Year
  Sex: Female

DRUGS (2)
  1. SIFROL [Suspect]
     Active Substance: PRAMIPEXOLE
     Indication: RESTLESS LEGS SYNDROME
     Dosage: 0.5 MG
     Route: 065
  2. DOMIN [Suspect]
     Active Substance: DOPAMINE HYDROCHLORIDE
     Indication: RESTLESS LEGS SYNDROME
     Dosage: 0.4 MG
     Route: 065

REACTIONS (2)
  - Drug withdrawal syndrome [Recovered/Resolved]
  - Product use issue [Unknown]
